FAERS Safety Report 7921910-4 (Version None)
Quarter: 2011Q4

REPORT INFORMATION
  Report Type: 
  Country: None (occurrence: None)
  Receive Date: 20111117
  Receipt Date: 20111108
  Transmission Date: 20120403
  Serious: Yes (Other)
  Sender: FDA-Public Use
  Company Number: IT-ASTRAZENECA-2011SE67566

PATIENT
  Age: 23957 Day
  Sex: Male

DRUGS (6)
  1. ATACAND [Suspect]
     Indication: HYPERTENSION
     Route: 048
     Dates: start: 20060309, end: 20110616
  2. VASERETIC [Concomitant]
  3. SIMVASTATIN [Suspect]
     Indication: DYSLIPIDAEMIA
     Route: 048
     Dates: start: 20050218, end: 20110616
  4. ISOPTIN [Concomitant]
     Dosage: 180 MG PROLONGED-RELEASE TABLETS
     Route: 048
  5. CARDURA [Concomitant]
  6. ASPIRIN [Concomitant]

REACTIONS (2)
  - GLOMERULAR FILTRATION RATE DECREASED [None]
  - BLOOD CREATINE PHOSPHOKINASE INCREASED [None]
